FAERS Safety Report 18250466 (Version 1)
Quarter: 2020Q3

REPORT INFORMATION
  Report Type: Report from Study
  Country: US (occurrence: US)
  Receive Date: 20200909
  Receipt Date: 20200909
  Transmission Date: 20201103
  Serious: Yes (Hospitalization)
  Sender: FDA-Public Use
  Company Number: US-JNJFOC-A-NJ2020-200221

PATIENT
  Age: 49 Year
  Sex: Female
  Weight: 59.02 kg

DRUGS (7)
  1. OPSUMIT [Suspect]
     Active Substance: MACITENTAN
     Indication: PULMONARY HYPERTENSION
     Dosage: 10 MG, QD
     Route: 048
  2. REMODULIN [Concomitant]
     Active Substance: TREPROSTINIL
     Route: 058
  3. REVATIO [Concomitant]
     Active Substance: SILDENAFIL CITRATE
     Dosage: 20 MG, TID
  4. REMODULIN [Concomitant]
     Active Substance: TREPROSTINIL
     Route: 042
  5. DILTIAZEM. [Concomitant]
     Active Substance: DILTIAZEM
  6. REMODULIN [Concomitant]
     Active Substance: TREPROSTINIL
     Dosage: 219 NG/KG, PER MIN
  7. SILDENAFIL CITRATE. [Concomitant]
     Active Substance: SILDENAFIL CITRATE

REACTIONS (6)
  - Pericardial effusion [Unknown]
  - Nasopharyngitis [Recovering/Resolving]
  - Pneumothorax [Unknown]
  - Swelling [Unknown]
  - Catheterisation cardiac [Unknown]
  - Cough [Recovering/Resolving]
